FAERS Safety Report 22526631 (Version 6)
Quarter: 2025Q4

REPORT INFORMATION
  Report Type: Spontaneous
  Country: IN (occurrence: IN)
  Receive Date: 20230606
  Receipt Date: 20251201
  Transmission Date: 20260117
  Serious: Yes (Other)
  Sender: PFIZER
  Company Number: IN-PFIZER INC-PV202200083751

PATIENT
  Age: 60 Year
  Sex: Female

DRUGS (4)
  1. LORLATINIB [Suspect]
     Active Substance: LORLATINIB
     Indication: Lung neoplasm malignant
     Dosage: 100 MG, 1X/DAY
     Route: 048
     Dates: start: 202205
  2. CALCIUM CARBONATE\CHOLECALCIFEROL [Concomitant]
     Active Substance: CALCIUM CARBONATE\CHOLECALCIFEROL
     Dosage: UNK, 1X/DAY
  3. CALCIUM CARBONATE\CHOLECALCIFEROL [Concomitant]
     Active Substance: CALCIUM CARBONATE\CHOLECALCIFEROL
     Dosage: UNK, 2X/DAY
  4. ZOLEDRONIC ACID [Concomitant]
     Active Substance: ZOLEDRONIC ACID
     Dosage: UNK

REACTIONS (15)
  - Body mass index increased [Unknown]
  - Tuberculosis [Unknown]
  - Arthralgia [Unknown]
  - Weight increased [Unknown]
  - Blood glucose abnormal [Unknown]
  - Lipids abnormal [Unknown]
  - Obstructive sleep apnoea syndrome [Unknown]
  - Blood pressure increased [Unknown]
  - Body surface area increased [Unknown]
  - Respiratory rate increased [Unknown]
  - Heart rate increased [Unknown]
  - Faeces discoloured [Unknown]
  - Back pain [Unknown]
  - Gait disturbance [Unknown]
  - Product dose omission issue [Unknown]

NARRATIVE: CASE EVENT DATE: 20221008
